FAERS Safety Report 19104693 (Version 3)
Quarter: 2024Q1

REPORT INFORMATION
  Report Type: Spontaneous
  Country: IT (occurrence: IT)
  Receive Date: 20210408
  Receipt Date: 20240313
  Transmission Date: 20240409
  Serious: Yes (Other)
  Sender: FDA-Public Use
  Company Number: IT-CELLTRION INC.-2021IT004378

PATIENT

DRUGS (6)
  1. RITUXIMAB [Suspect]
     Active Substance: RITUXIMAB
     Indication: Non-Hodgkin^s lymphoma
     Dosage: 648.8 MG, 1 CYCLE
     Route: 042
     Dates: start: 20180906
  2. BENDAMUSTINE HYDROCHLORIDE [Suspect]
     Active Substance: BENDAMUSTINE HYDROCHLORIDE
     Indication: Non-Hodgkin^s lymphoma
     Dosage: 77.85 MILLIGRAM, 1 CYCLE
     Route: 042
     Dates: start: 20180906, end: 20181031
  3. EVEROLIMUS [Suspect]
     Active Substance: EVEROLIMUS
     Indication: Non-Hodgkin^s lymphoma
     Dosage: 648.8 MG, 1 CYCLE
     Route: 042
     Dates: start: 20180913, end: 20181030
  4. GRANISETRON [Concomitant]
     Active Substance: GRANISETRON
     Indication: Non-Hodgkin^s lymphoma
     Dosage: 3 MG, 1 CYCLE
     Dates: start: 20180906, end: 20181031
  5. HYDROCORTISONE [Concomitant]
     Active Substance: HYDROCORTISONE
     Indication: Non-Hodgkin^s lymphoma
     Dosage: 100 MG, 1 CYCLE
     Route: 042
     Dates: start: 20180913, end: 20181030
  6. CHLORPHENIRAMINE MALEATE [Concomitant]
     Active Substance: CHLORPHENIRAMINE MALEATE
     Indication: Non-Hodgkin^s lymphoma
     Dosage: 10 MG, 1 CYCLE
     Route: 042
     Dates: start: 20180913, end: 20181030

REACTIONS (3)
  - Hyperthermia [Recovered/Resolved]
  - Sepsis [Recovered/Resolved]
  - Infusion related reaction [Recovered/Resolved]

NARRATIVE: CASE EVENT DATE: 20200806
